FAERS Safety Report 4600092-0 (Version None)
Quarter: 2005Q1

REPORT INFORMATION
  Report Type: 
  Country: None (occurrence: None)
  Receive Date: 20050303
  Receipt Date: 20050215
  Transmission Date: 20050727
  Serious: No
  Sender: FDA-Public Use
  Company Number: A01200500466

PATIENT
  Age: 41 Year
  Sex: Female

DRUGS (3)
  1. ELOXATIN [Suspect]
     Indication: COLORECTAL CANCER
     Dosage: 170 MG Q2W, INTRAVENOUS NOS
     Route: 042
     Dates: start: 20041214, end: 20041214
  2. FLUOROURACIL [Concomitant]
  3. LEUCOVORIN [Concomitant]

REACTIONS (2)
  - BLINDNESS TRANSIENT [None]
  - VISUAL FIELD DEFECT [None]
